FAERS Safety Report 6174407-9 (Version None)
Quarter: 2009Q2

REPORT INFORMATION
  Report Type: 
  Country: None (occurrence: None)
  Receive Date: 20090430
  Receipt Date: 20090422
  Transmission Date: 20091009
  Serious: Yes (Hospitalization)
  Sender: FDA-Public Use
  Company Number: ES-B.I. PHARMACEUTICALS,INC./RIDGEFIELD-2009-ES-00070ES

PATIENT
  Age: 85 Year
  Sex: Male

DRUGS (5)
  1. MIRAPEX [Suspect]
     Indication: PARKINSON'S DISEASE
     Route: 048
     Dates: start: 20071128, end: 20090307
  2. ADIRO [Concomitant]
     Indication: DIABETES MELLITUS
     Route: 048
     Dates: start: 20080805
  3. CETIRIZINA [Concomitant]
     Route: 048
     Dates: start: 20090205
  4. INSULATARD [Concomitant]
     Indication: DIABETES MELLITUS
     Route: 058
     Dates: start: 20080805
  5. SINEMET [Concomitant]
     Indication: PARKINSON'S DISEASE
     Route: 048
     Dates: start: 20070727

REACTIONS (1)
  - SPEECH DISORDER [None]
